FAERS Safety Report 4316362-X (Version None)
Quarter: 2004Q1

REPORT INFORMATION
  Report Type: 
  Country: None (occurrence: None)
  Receive Date: 20040311
  Receipt Date: 20040225
  Transmission Date: 20041129
  Serious: Yes (Life-Threatening, Hospitalization)
  Sender: FDA-Public Use
  Company Number: 2003-BP-10838NB

PATIENT
  Age: 84 Year
  Sex: Female

DRUGS (7)
  1. MOBIC [Suspect]
     Indication: BACK PAIN
     Dosage: 10 MG PO
     Route: 048
     Dates: start: 20030602, end: 20031215
  2. GASTER D (TA) [Suspect]
     Dosage: PO
     Route: 048
  3. ASPIRIN [Concomitant]
  4. LEVOTHYROXINE SODIUM [Concomitant]
  5. PANTOSIN (PANTETHINE) [Concomitant]
  6. MAGNESIUM OXIDE (PL) [Concomitant]
  7. MIYA BM(GR) [Concomitant]

REACTIONS (3)
  - BACK PAIN [None]
  - EOSINOPHILIC PNEUMONIA [None]
  - RESPIRATORY DISTRESS [None]
